FAERS Safety Report 19306973 (Version 1)
Quarter: 2021Q2

REPORT INFORMATION
  Report Type: Spontaneous
  Country: US (occurrence: US)
  Receive Date: 20210526
  Receipt Date: 20210526
  Transmission Date: 20210717
  Serious: Yes (Life-Threatening, Other)
  Sender: FDA-Public Use
  Company Number: US-MYLANLABS-2021M1030498

PATIENT
  Age: 40 Year
  Sex: Female

DRUGS (1)
  1. EPINEPHRINE. [Suspect]
     Active Substance: EPINEPHRINE
     Indication: PRODUCT USED FOR UNKNOWN INDICATION
     Dosage: UNK
     Dates: start: 20210517

REACTIONS (12)
  - Hypoaesthesia oral [Unknown]
  - Appetite disorder [Unknown]
  - Fatigue [Unknown]
  - Swelling face [Unknown]
  - Tremor [Unknown]
  - Oropharyngeal pain [Unknown]
  - Speech disorder [Unknown]
  - Chest discomfort [Unknown]
  - Drug ineffective [Unknown]
  - Electrocardiogram abnormal [Unknown]
  - Cough [Unknown]
  - Hypoaesthesia [Unknown]

NARRATIVE: CASE EVENT DATE: 20210517
